FAERS Safety Report 9440496 (Version 3)
Quarter: 2013Q4

REPORT INFORMATION
  Report Type: Spontaneous
  Country: US (occurrence: US)
  Receive Date: 20130805
  Receipt Date: 20131014
  Transmission Date: 20140711
  Serious: Yes (Death, Hospitalization)
  Sender: FDA-Public Use
  Company Number: US-UCBSA-094048

PATIENT
  Age: 69 Year
  Sex: Male
  Weight: 47.17 kg

DRUGS (1)
  1. CIMZIA [Suspect]
     Indication: CROHN^S DISEASE
     Route: 058
     Dates: start: 201304, end: 20130715

REACTIONS (8)
  - Death [Fatal]
  - Unresponsive to stimuli [Not Recovered/Not Resolved]
  - Fall [Unknown]
  - Rhabdomyolysis [Unknown]
  - Mental status changes [Unknown]
  - Altered state of consciousness [Unknown]
  - Metabolic encephalopathy [Unknown]
  - Protein deficiency [Unknown]
